FAERS Safety Report 7748646 (Version 2)
Quarter: 2020Q3

REPORT INFORMATION
  Report Type: Report from Study
  Country: CA (occurrence: CA)
  Receive Date: 20110105
  Receipt Date: 20110128
  Transmission Date: 20201104
  Serious: Yes (Hospitalization)
  Sender: FDA-Public Use
  Company Number: CA-JNJFOC-20110100136

PATIENT
  Age: 60 Year
  Sex: Male

DRUGS (10)
  1. CRESTOR [Concomitant]
     Active Substance: ROSUVASTATIN CALCIUM
  2. USTEKINUMAB [Suspect]
     Active Substance: USTEKINUMAB
     Indication: PSORIASIS
     Route: 058
  3. METFORMIN [Concomitant]
     Active Substance: METFORMIN HYDROCHLORIDE
  4. METFORMIN [Concomitant]
     Active Substance: METFORMIN HYDROCHLORIDE
  5. FLUOXETINE [Concomitant]
     Active Substance: FLUOXETINE HYDROCHLORIDE
  6. AMLODIPINE [Concomitant]
     Active Substance: AMLODIPINE BESYLATE
  7. ATENOLOL. [Concomitant]
     Active Substance: ATENOLOL
  8. ALTACE HCT [Concomitant]
  9. USTEKINUMAB [Suspect]
     Active Substance: USTEKINUMAB
     Route: 058
  10. ALTACE [Concomitant]
     Active Substance: RAMIPRIL

REACTIONS (1)
  - Loss of consciousness [Not Recovered/Not Resolved]

NARRATIVE: CASE EVENT DATE: 20101211
